FAERS Safety Report 5132288-6 (Version None)
Quarter: 2006Q4

REPORT INFORMATION
  Report Type: 
  Country: None (occurrence: None)
  Receive Date: 20061019
  Receipt Date: 20061019
  Transmission Date: 20070319
  Serious: Yes (Hospitalization)
  Sender: FDA-Public Use
  Company Number: None

PATIENT
  Age: 47 Year
  Sex: Male
  Weight: 120.2 kg

DRUGS (27)
  1. GEMFIBROZIL [Suspect]
  2. RANITIDINE HCL [Concomitant]
  3. TEMAZEPAM [Concomitant]
  4. FENTANYL [Concomitant]
  5. POTASSIUM CHLORIDE [Concomitant]
  6. DIAZEPAM [Concomitant]
  7. LORAZEPAM [Concomitant]
  8. CITALOPRAM HYDROBROMIDE [Concomitant]
  9. ONDANSETRON HCL [Concomitant]
  10. ATENOLOL [Concomitant]
  11. SPIRONOLACTONE [Concomitant]
  12. NIACIN (NIASPAN-KOS) [Concomitant]
  13. FUROSEMIDE [Concomitant]
  14. LACTULOSE [Concomitant]
  15. HEMORHOIDAL/HC 1% [Concomitant]
  16. ALBUTEROL / IPRATROP [Concomitant]
  17. TOPIRAMATE [Concomitant]
  18. TRIAMCINOLONE [Concomitant]
  19. SILVER SULFADIAZINE [Concomitant]
  20. ALLOPURINOL [Concomitant]
  21. SIMETHICONE [Concomitant]
  22. TRIAMCINOLONE ACETONIDE [Concomitant]
  23. HYDROXYZINE [Concomitant]
  24. OMEPRAZOLE [Concomitant]
  25. HYDROMORPHONE HCL [Concomitant]
  26. ASPIRIN [Concomitant]
  27. HYDROCORTISONE/NEOMYCIN/POLYMYXIN B [Concomitant]

REACTIONS (2)
  - HEPATIC ENZYME ABNORMAL [None]
  - MYALGIA [None]
